FAERS Safety Report 21870298 (Version 1)
Quarter: 2023Q1

REPORT INFORMATION
  Report Type: Report from Study
  Country: US (occurrence: US)
  Receive Date: 20230117
  Receipt Date: 20230117
  Transmission Date: 20230418
  Serious: No
  Sender: FDA-Public Use
  Company Number: US-ABBVIE-22K-163-4423299-00

PATIENT
  Sex: Male

DRUGS (1)
  1. HUMIRA [Suspect]
     Active Substance: ADALIMUMAB
     Indication: Psoriasis
     Dosage: LAST ADMIN DATE:2022, CITRATE FREE, STRENGTH:40MG?ONSET DATE FOR UPPER RESPIRATORY INFECTIONS, BR...
     Route: 058
     Dates: start: 20220217

REACTIONS (4)
  - Pneumonia [Recovered/Resolved]
  - COVID-19 [Recovered/Resolved]
  - Bronchitis [Unknown]
  - Upper respiratory tract infection [Unknown]
